FAERS Safety Report 6926140-0 (Version None)
Quarter: 2010Q3

REPORT INFORMATION
  Report Type: 
  Country: None (occurrence: None)
  Receive Date: 20100816
  Receipt Date: 20100806
  Transmission Date: 20110219
  Serious: Yes (Hospitalization, Other)
  Sender: FDA-Public Use
  Company Number: US-AMGEN-QUU422515

PATIENT
  Sex: Male
  Weight: 61 kg

DRUGS (17)
  1. ARANESP [Suspect]
     Indication: RENAL FAILURE CHRONIC
     Route: 042
     Dates: start: 20100101, end: 20100701
  2. EPOETIN ALFA [Suspect]
     Indication: RENAL FAILURE CHRONIC
     Route: 058
     Dates: start: 20070101, end: 20100101
  3. ROCALTROL [Concomitant]
     Route: 048
  4. GABAPENTIN [Concomitant]
     Route: 048
  5. OSELTAMIVIR [Concomitant]
  6. LOPRESSOR [Concomitant]
     Route: 048
  7. COZAAR [Concomitant]
  8. PROTONIX [Concomitant]
     Route: 048
  9. MINOXIDIL [Concomitant]
  10. KLONOPIN [Concomitant]
     Route: 048
  11. HEPARIN [Concomitant]
     Route: 042
  12. PROCARDIA [Concomitant]
     Route: 048
  13. ZOFRAN [Concomitant]
     Route: 048
  14. OXYCODONE [Concomitant]
     Route: 048
  15. LIDOCAINE [Concomitant]
  16. CLONIDINE [Concomitant]
     Route: 048
  17. BENADRYL [Concomitant]

REACTIONS (4)
  - ANAEMIA [None]
  - APLASIA PURE RED CELL [None]
  - BONE MARROW MYELOGRAM ABNORMAL [None]
  - THERAPEUTIC RESPONSE DECREASED [None]
